FAERS Safety Report 7693478-1 (Version None)
Quarter: 2011Q3

REPORT INFORMATION
  Report Type: 
  Country: None (occurrence: None)
  Receive Date: 20110819
  Receipt Date: 20110819
  Transmission Date: 20111222
  Serious: No
  Sender: FDA-Public Use
  Company Number: None

PATIENT
  Age: 48 Year
  Sex: Female
  Weight: 67.131 kg

DRUGS (1)
  1. CIPROFLOXACIN [Suspect]
     Indication: DERMATITIS CONTACT
     Dates: start: 20100507, end: 20100514

REACTIONS (10)
  - GAIT DISTURBANCE [None]
  - PERIPHERAL COLDNESS [None]
  - PAIN IN EXTREMITY [None]
  - BURNING SENSATION [None]
  - NEUROPATHY PERIPHERAL [None]
  - ARTHRALGIA [None]
  - BONE PAIN [None]
  - DYSKINESIA [None]
  - MYALGIA [None]
  - VISUAL ACUITY REDUCED [None]
